FAERS Safety Report 17809935 (Version 2)
Quarter: 2020Q2

REPORT INFORMATION
  Report Type: Report from Study
  Country: SE (occurrence: SE)
  Receive Date: 20200520
  Receipt Date: 20200522
  Transmission Date: 20200714
  Serious: Yes (Hospitalization, Other)
  Sender: FDA-Public Use
  Company Number: SE-CELGENEUS-SWE-2016066860

PATIENT
  Age: 74 Year
  Sex: Female
  Weight: 74 kg

DRUGS (4)
  1. AZACITIDINE. [Suspect]
     Active Substance: AZACITIDINE
     Indication: MYELODYSPLASTIC SYNDROME
     Dosage: 75 MG/M2
     Route: 058
     Dates: start: 20160620, end: 20160718
  2. AZACITIDINE. [Suspect]
     Active Substance: AZACITIDINE
     Dosage: 75 MG/M2
     Route: 058
     Dates: start: 20160725
  3. AMOXICILLIN/CLAVULANIC ACID [Concomitant]
     Active Substance: AMOXICILLIN\CLAVULANIC ACID
     Indication: PROPHYLAXIS
     Dosage: 500/125
     Route: 065
     Dates: start: 20160629, end: 20160706
  4. REVLIMID [Suspect]
     Active Substance: LENALIDOMIDE
     Indication: MYELODYSPLASTIC SYNDROME
     Dosage: 10 MG
     Route: 048
     Dates: start: 20160620, end: 20160706

REACTIONS (5)
  - Pneumocystis jirovecii pneumonia [Recovered/Resolved]
  - Infection [Unknown]
  - Febrile neutropenia [Recovered/Resolved with Sequelae]
  - Febrile neutropenia [Recovered/Resolved]
  - Infection [Recovered/Resolved with Sequelae]

NARRATIVE: CASE EVENT DATE: 20160623
